FAERS Safety Report 5815553-6 (Version None)
Quarter: 2008Q3

REPORT INFORMATION
  Report Type: 
  Country: None (occurrence: None)
  Receive Date: 20080716
  Receipt Date: 20080707
  Transmission Date: 20090109
  Serious: Yes (Other)
  Sender: FDA-Public Use
  Company Number: 022882

PATIENT
  Age: 15 Year
  Sex: Female

DRUGS (4)
  1. CLARAVIS [Suspect]
     Dosage: 40 MG IN AM, ORAL, 20 MG IN PM, ORAL
     Route: 048
     Dates: start: 20071016, end: 20071126
  2. CLARAVIS [Suspect]
     Dosage: 40 MG IN AM, ORAL, 20 MG IN PM, ORAL
     Route: 048
     Dates: start: 20071016, end: 20071126
  3. CLARAVIS [Suspect]
     Dosage: 40 MG IN AM, ORAL, 20 MG IN PM, ORAL
     Route: 048
     Dates: start: 20071218, end: 20080117
  4. CLARAVIS [Suspect]
     Dosage: 40 MG IN AM, ORAL, 20 MG IN PM, ORAL
     Route: 048
     Dates: start: 20071218, end: 20080117

REACTIONS (6)
  - ABORTION INDUCED [None]
  - DRUG EXPOSURE DURING PREGNANCY [None]
  - PHARMACEUTICAL PRODUCT COMPLAINT [None]
  - PREGNANCY WITH INJECTABLE CONTRACEPTIVE [None]
  - TREATMENT NONCOMPLIANCE [None]
  - UNINTENDED PREGNANCY [None]
